FAERS Safety Report 24246579 (Version 6)
Quarter: 2025Q2

REPORT INFORMATION
  Report Type: Report from Study
  Country: CO (occurrence: CO)
  Receive Date: 20240825
  Receipt Date: 20250611
  Transmission Date: 20250717
  Serious: Yes (Other)
  Sender: ABBVIE
  Company Number: CO-ABBVIE-5891217

PATIENT
  Age: 62 Year
  Sex: Female
  Weight: 65 kg

DRUGS (2)
  1. SKYRIZI [Suspect]
     Active Substance: RISANKIZUMAB-RZAA
     Indication: Psoriasis
     Dosage: FORM STRENGTH: 150 MILIGRAM
     Route: 058
     Dates: start: 20221215, end: 20240813
  2. ADALIMUMAB [Suspect]
     Active Substance: ADALIMUMAB
     Indication: Product used for unknown indication
     Dosage: 2 APPLICATIONS
     Route: 065

REACTIONS (23)
  - Vaginal haemorrhage [Not Recovered/Not Resolved]
  - Ovarian neoplasm [Unknown]
  - Depressed mood [Not Recovered/Not Resolved]
  - Dry skin [Not Recovered/Not Resolved]
  - Nervousness [Recovered/Resolved]
  - Skin tightness [Not Recovered/Not Resolved]
  - Hair texture abnormal [Unknown]
  - Nail hypertrophy [Not Recovered/Not Resolved]
  - Weight decreased [Not Recovered/Not Resolved]
  - Drug ineffective [Unknown]
  - Hair disorder [Not Recovered/Not Resolved]
  - Skin exfoliation [Not Recovered/Not Resolved]
  - Alopecia [Not Recovered/Not Resolved]
  - Scab [Not Recovered/Not Resolved]
  - Skin tightness [Not Recovered/Not Resolved]
  - Splinter [Not Recovered/Not Resolved]
  - Erythema [Not Recovered/Not Resolved]
  - Boredom [Not Recovered/Not Resolved]
  - Skin exfoliation [Not Recovered/Not Resolved]
  - Nail disorder [Not Recovered/Not Resolved]
  - Drug ineffective [Unknown]
  - Psoriasis [Not Recovered/Not Resolved]
  - Hair injury [Unknown]

NARRATIVE: CASE EVENT DATE: 20220101
